FAERS Safety Report 5044251-4 (Version None)
Quarter: 2006Q2

REPORT INFORMATION
  Report Type: 
  Country: None (occurrence: None)
  Receive Date: 20060601
  Receipt Date: 20060414
  Transmission Date: 20061013
  Serious: No
  Sender: FDA-Public Use
  Company Number: US200603007101

PATIENT
  Sex: Female

DRUGS (1)
  1. CYMBALTA [Suspect]
     Dosage: 120 MG
     Dates: end: 20060330

REACTIONS (2)
  - PRESCRIBED OVERDOSE [None]
  - URINARY RETENTION [None]
